FAERS Safety Report 25639632 (Version 1)
Quarter: 2025Q3

REPORT INFORMATION
  Report Type: Report from Study
  Country: US (occurrence: US)
  Receive Date: 20250804
  Receipt Date: 20250804
  Transmission Date: 20251021
  Serious: No
  Sender: AURINIA PHARMACEUTICALS
  Company Number: US-AURINIA PHARMACEUTICALS INC.-AUR-008396

PATIENT
  Sex: Female

DRUGS (2)
  1. LUPKYNIS [Suspect]
     Active Substance: VOCLOSPORIN
     Indication: Lupus nephritis
     Dosage: TAKE 3 CAPSULES BY MOUTH IN THE MORNING AND 2 IN THE EVENING
     Route: 048
     Dates: start: 20230815
  2. LUPKYNIS [Suspect]
     Active Substance: VOCLOSPORIN
     Dosage: TAKE 3 CAPSULES BY MOUTH IN THE MORNING AND 2 IN THE EVENING
     Route: 048

REACTIONS (3)
  - Memory impairment [Not Recovered/Not Resolved]
  - Coordination abnormal [Not Recovered/Not Resolved]
  - Treatment noncompliance [Unknown]
